FAERS Safety Report 7733220 (Version 2)
Quarter: 2012Q4

REPORT INFORMATION
  Report Type: 
  Country: JP (occurrence: US)
  Receive Date: 20101223
  Receipt Date: 20121130
  Transmission Date: 20130627
  Serious: Yes (Other)
  Sender: FDA-Public Use
  Company Number: US-JNJFOC-20100807833

PATIENT
  Sex: Female

DRUGS (14)
  1. LEVAQUIN [Suspect]
     Indication: URINARY TRACT INFECTION
     Route: 048
     Dates: start: 20080602, end: 20080612
  2. LEVAQUIN [Suspect]
     Indication: URINARY TRACT INFECTION
     Route: 048
     Dates: start: 20070514, end: 20070824
  3. LEVAQUIN [Suspect]
     Indication: SINUSITIS
     Route: 048
     Dates: start: 20070514, end: 20070824
  4. LEVAQUIN [Suspect]
     Indication: SINUSITIS
     Route: 048
     Dates: start: 20080602, end: 20080612
  5. LEVAQUIN [Suspect]
     Indication: CYSTITIS
     Route: 048
     Dates: start: 20080602, end: 20080612
  6. LEVAQUIN [Suspect]
     Indication: CYSTITIS
     Route: 048
     Dates: start: 20070514, end: 20070824
  7. PREDNISONE [Suspect]
     Indication: MULTIPLE SCLEROSIS
     Route: 048
     Dates: start: 20080529
  8. PREDNISONE [Suspect]
     Indication: MULTIPLE SCLEROSIS
     Route: 048
     Dates: start: 20070608
  9. PREDNISONE [Suspect]
     Indication: MULTIPLE SCLEROSIS
     Route: 048
     Dates: start: 20070517
  10. CIPRO [Suspect]
     Indication: URINARY TRACT INFECTION
     Route: 048
     Dates: start: 20070320, end: 20070325
  11. CIPROFLOXACIN [Suspect]
     Indication: URINARY TRACT INFECTION
     Route: 048
     Dates: start: 20070612, end: 20070617
  12. CIPROFLOXACIN [Suspect]
     Indication: URINARY TRACT INFECTION
     Route: 048
     Dates: start: 20080710, end: 20080717
  13. SOLU MEDROL [Suspect]
     Indication: PRODUCT USED FOR UNKNOWN INDICATION
     Route: 042
  14. ADVAIR DISKUS [Suspect]
     Indication: PRODUCT USED FOR UNKNOWN INDICATION
     Route: 055

REACTIONS (7)
  - Meniscus injury [Recovering/Resolving]
  - Tendon rupture [Unknown]
  - Rotator cuff syndrome [Unknown]
  - Tendon disorder [Unknown]
  - Tendonitis [Unknown]
  - Tendon disorder [Unknown]
  - Drug ineffective [Unknown]
